FAERS Safety Report 11213633 (Version 1)
Quarter: 2015Q2

REPORT INFORMATION
  Report Type: Spontaneous
  Country: ES (occurrence: ES)
  Receive Date: 20150623
  Receipt Date: 20150623
  Transmission Date: 20150821
  Serious: Yes (Other)
  Sender: FDA-Public Use
  Company Number: ES-MYLANLABS-2015M1020532

PATIENT

DRUGS (3)
  1. MEROPENEM. [Concomitant]
     Active Substance: MEROPENEM
     Route: 065
  2. VANCOMYCIN [Suspect]
     Active Substance: VANCOMYCIN
     Indication: INFECTION
     Route: 065
  3. TERLIPRESSIN [Suspect]
     Active Substance: TERLIPRESSIN
     Indication: HEPATORENAL SYNDROME
     Route: 065

REACTIONS (3)
  - Skin necrosis [Recovering/Resolving]
  - Nephropathy toxic [Unknown]
  - Linear IgA disease [Recovering/Resolving]
